FAERS Safety Report 5959742-9 (Version None)
Quarter: 2008Q4

REPORT INFORMATION
  Report Type: 
  Country: None (occurrence: None)
  Receive Date: 20081119
  Receipt Date: 20081119
  Transmission Date: 20090506
  Serious: Yes (Life-Threatening)
  Sender: FDA-Public Use
  Company Number: None

PATIENT
  Age: 48 Year
  Sex: Female
  Weight: 39 kg

DRUGS (5)
  1. SIMULECT [Suspect]
     Indication: LUNG TRANSPLANT
     Dosage: 20MG IV OVER 10-15 MIN
     Route: 042
     Dates: start: 20081026
  2. CELLCEPT [Suspect]
     Indication: LUNG TRANSPLANT
     Dosage: 1 GM IV OVER 10-15 MIN
     Route: 042
     Dates: start: 20081026
  3. CEFEPIME [Concomitant]
  4. VANCOMYCIN HCL [Concomitant]
  5. FLAGYL [Concomitant]

REACTIONS (3)
  - BLOOD PRESSURE SYSTOLIC INCREASED [None]
  - HYPOTENSION [None]
  - RIGHT VENTRICULAR FAILURE [None]
